FAERS Safety Report 8990621 (Version 2)
Quarter: 2013Q1

REPORT INFORMATION
  Report Type: Report from Study
  Country: US (occurrence: US)
  Receive Date: 20121228
  Receipt Date: 20130117
  Transmission Date: 20140127
  Serious: Yes (Hospitalization)
  Sender: FDA-Public Use
  Company Number: US-ROCHE-1165569

PATIENT
  Age: 65 Year
  Sex: Male

DRUGS (1)
  1. CAPECITABINE [Suspect]
     Indication: NEOPLASM MALIGNANT
     Route: 065

REACTIONS (8)
  - Somnolence [Unknown]
  - Dysarthria [Unknown]
  - Gait disturbance [Recovering/Resolving]
  - Fall [Unknown]
  - Feeling hot [Unknown]
  - Vomiting [Unknown]
  - Asthenia [Unknown]
  - Hypoaesthesia [Unknown]
